FAERS Safety Report 4645631-9 (Version None)
Quarter: 2005Q2

REPORT INFORMATION
  Report Type: 
  Country: None (occurrence: None)
  Receive Date: 20050331
  Receipt Date: 20041201
  Transmission Date: 20051028
  Serious: No
  Sender: FDA-Public Use
  Company Number: 04P-163-0282796-00

PATIENT
  Age: 74 Year
  Sex: Female
  Weight: 57.6068 kg

DRUGS (8)
  1. HUMIRA [Suspect]
     Indication: RHEUMATOID ARTHRITIS
     Dosage: 40 MG, 1 IN 2 WK, SUBCUTANEOUS
     Route: 058
     Dates: start: 20040701
  2. GABAPENTIN [Concomitant]
  3. FLUOXETINE HCL [Concomitant]
  4. FLUVASTATIN SODIUM [Concomitant]
  5. MIRTAZAPINE [Concomitant]
  6. METHOTREXATE SODIUM [Concomitant]
  7. FOLIC ACID [Concomitant]
  8. LORAZEPAM [Concomitant]

REACTIONS (1)
  - PARAESTHESIA [None]
